FAERS Safety Report 8063944-8 (Version None)
Quarter: 2012Q1

REPORT INFORMATION
  Report Type: 
  Country: None (occurrence: None)
  Receive Date: 20120123
  Receipt Date: 20120111
  Transmission Date: 20120608
  Serious: Yes (Other)
  Sender: FDA-Public Use
  Company Number: PHEH2011US012191

PATIENT
  Sex: Male
  Weight: 59.773 kg

DRUGS (10)
  1. ASCORBIC ACID [Concomitant]
     Dosage: 500 MG, TID
     Route: 048
  2. MULTIVITAMIN [Concomitant]
     Route: 048
  3. DILAUDID [Concomitant]
  4. GILENYA [Suspect]
     Dosage: 0.5 MG, DAILY
     Route: 048
     Dates: start: 20111015
  5. OXYCODONE HCL [Concomitant]
     Indication: PAIN
     Dosage: 5 MG, PRN
     Route: 048
  6. ZOLOFT [Concomitant]
     Indication: DEPRESSION
     Dosage: 3 DF, TID
     Route: 048
  7. GILENYA [Suspect]
     Indication: MULTIPLE SCLEROSIS
     Dosage: 0.5 MG, DAILY
     Route: 048
     Dates: start: 20110610
  8. ENSURE [Concomitant]
     Dosage: 1 CAN, BID
     Route: 048
  9. BACLOFEN [Concomitant]
     Indication: PAIN
     Dosage: 10 MG, PRN
     Route: 048
  10. NEURONTIN [Concomitant]
     Indication: PAIN

REACTIONS (4)
  - ABDOMINAL DISCOMFORT [None]
  - CYST [None]
  - FATIGUE [None]
  - GASTROINTESTINAL DISORDER [None]
